FAERS Safety Report 10011287 (Version 4)
Quarter: 2014Q2

REPORT INFORMATION
  Report Type: Report from Study
  Country: US (occurrence: US)
  Receive Date: 20140314
  Receipt Date: 20140425
  Transmission Date: 20141212
  Serious: Yes (Hospitalization, Disabling)
  Sender: FDA-Public Use
  Company Number: US-JNJFOC-20140306400

PATIENT
  Age: 15 Year
  Sex: Male
  Weight: 44 kg

DRUGS (3)
  1. REMICADE [Suspect]
     Indication: CROHN^S DISEASE
     Route: 042
  2. 6-MERCAPTOPURINE [Concomitant]
     Route: 065
  3. 5-ASA [Concomitant]
     Route: 048

REACTIONS (1)
  - Acute psychosis [Recovered/Resolved with Sequelae]
